FAERS Safety Report 6696743-X (Version None)
Quarter: 2010Q2

REPORT INFORMATION
  Report Type: 
  Country: None (occurrence: None)
  Receive Date: 20100426
  Receipt Date: 20100416
  Transmission Date: 20101027
  Serious: Yes (Other)
  Sender: FDA-Public Use
  Company Number: US-SANOFI-AVENTIS-2010SA022512

PATIENT
  Age: 63 Year
  Sex: Male
  Weight: 119.7 kg

DRUGS (3)
  1. GLIMEPIRIDE [Suspect]
     Route: 065
  2. DRUG USED IN DIABETES [Suspect]
     Route: 065
  3. VALSARTAN [Suspect]
     Route: 065

REACTIONS (1)
  - WEIGHT INCREASED [None]
